FAERS Safety Report 5641074-X (Version None)
Quarter: 2008Q1

REPORT INFORMATION
  Report Type: 
  Country: None (occurrence: None)
  Receive Date: 20080227
  Receipt Date: 20080220
  Transmission Date: 20080703
  Serious: Yes (Other)
  Sender: FDA-Public Use
  Company Number: US-ASTRAZENECA-2008UW00834

PATIENT
  Age: 61 Year
  Sex: Female
  Weight: 86.8 kg

DRUGS (6)
  1. ARIMIDEX [Suspect]
     Indication: BREAST CANCER FEMALE
     Route: 048
     Dates: start: 20061101
  2. SYNTHROID [Concomitant]
     Indication: HYPOTHYROIDISM
     Route: 048
  3. DYAZIDE [Concomitant]
     Indication: HYPERTENSION
     Route: 048
  4. PROZAC [Concomitant]
  5. ADVAIR DISKUS 100/50 [Concomitant]
  6. CYMBALTA [Concomitant]
     Indication: DEPRESSION
     Route: 048

REACTIONS (2)
  - DYSPNOEA [None]
  - LUNG DISORDER [None]
